FAERS Safety Report 13301955 (Version 5)
Quarter: 2017Q4

REPORT INFORMATION
  Report Type: Report from Study
  Country: US (occurrence: US)
  Receive Date: 20170307
  Receipt Date: 20171124
  Transmission Date: 20180320
  Serious: Yes (Hospitalization)
  Sender: FDA-Public Use
  Company Number: US-B.I. PHARMACEUTICALS,INC./RIDGEFIELD-2016-BI-081433

PATIENT
  Age: 67 Year
  Sex: Female

DRUGS (2)
  1. OFEV [Suspect]
     Active Substance: NINTEDANIB
     Indication: IDIOPATHIC PULMONARY FIBROSIS
     Route: 048
     Dates: start: 20161007
  2. OFEV [Suspect]
     Active Substance: NINTEDANIB
     Route: 048

REACTIONS (19)
  - Diarrhoea [Unknown]
  - Dehydration [Unknown]
  - Cough [Unknown]
  - Nasal crusting [Unknown]
  - Headache [Unknown]
  - Weight decreased [Unknown]
  - Lung transplant [Unknown]
  - Dyspnoea [Unknown]
  - Productive cough [Unknown]
  - Catheterisation cardiac [Unknown]
  - Heart rate increased [Unknown]
  - Fungal infection [Unknown]
  - Chest discomfort [Unknown]
  - Toothache [Unknown]
  - Blood potassium decreased [Unknown]
  - Nausea [Unknown]
  - Fatigue [Unknown]
  - Dyspnoea exertional [Unknown]
  - Malaise [Unknown]

NARRATIVE: CASE EVENT DATE: 20171003
